FAERS Safety Report 10183150 (Version 1)
Quarter: 2014Q2

REPORT INFORMATION
  Report Type: Report from Study
  Country: NL (occurrence: NL)
  Receive Date: 20140520
  Receipt Date: 20140520
  Transmission Date: 20141212
  Serious: Yes (Hospitalization, Other)
  Sender: FDA-Public Use
  Company Number: NL-JNJFOC-20140502404

PATIENT
  Age: 77 Year
  Sex: Male

DRUGS (10)
  1. ABIRATERONE ACETATE [Suspect]
     Indication: PROSTATE CANCER
     Route: 048
     Dates: start: 20140130, end: 20140207
  2. ABIRATERONE ACETATE [Suspect]
     Indication: PROSTATE CANCER
     Route: 048
     Dates: start: 20140117, end: 20140122
  3. TAMSULOSIN [Concomitant]
     Route: 065
  4. MOVICOLON [Concomitant]
     Route: 065
  5. FENTANYL [Concomitant]
     Route: 065
  6. PARACETAMOL [Concomitant]
     Route: 065
  7. ESOMEPRAZOL [Concomitant]
     Route: 065
  8. OXYCODON [Concomitant]
     Dosage: IF NEEDED
     Route: 065
  9. PREDNISOLON [Concomitant]
     Route: 065
  10. METOPROLOL [Concomitant]
     Route: 065

REACTIONS (5)
  - Malaise [Recovered/Resolved]
  - Pulmonary sepsis [Recovered/Resolved]
  - Compression fracture [Recovered/Resolved]
  - Renal failure acute [Recovered/Resolved]
  - Urinary retention [Recovered/Resolved]
